FAERS Safety Report 9565496 (Version 3)
Quarter: 2013Q4

REPORT INFORMATION
  Report Type: Report from Study
  Country: US (occurrence: US)
  Receive Date: 20130930
  Receipt Date: 20131223
  Transmission Date: 20140711
  Serious: Yes (Death, Hospitalization)
  Sender: FDA-Public Use
  Company Number: US-ACTELION-A-US2013-86639

PATIENT
  Age: 58 Year
  Sex: Female

DRUGS (4)
  1. TRACLEER [Suspect]
     Indication: PULMONARY ARTERIAL HYPERTENSION
     Dosage: 125 MG, BID
     Route: 048
     Dates: start: 2009, end: 20131008
  2. TRACLEER [Suspect]
     Dosage: 62.5 UNK, UNK
     Route: 048
     Dates: start: 200909, end: 2009
  3. REMODULIN [Concomitant]
  4. SILDENAFIL [Concomitant]

REACTIONS (5)
  - Scleroderma [Fatal]
  - Lung disorder [Fatal]
  - Device related infection [Recovering/Resolving]
  - Malaise [Recovering/Resolving]
  - Infection [Unknown]
